FAERS Safety Report 25658700 (Version 1)
Quarter: 2025Q3

REPORT INFORMATION
  Report Type: Spontaneous
  Country: EU (occurrence: EU)
  Receive Date: 20250808
  Receipt Date: 20250808
  Transmission Date: 20251020
  Serious: Yes (Other)
  Sender: AUROBINDO
  Company Number: EU-AFSSAPS-AVNY2025000127

PATIENT
  Age: 34 Year
  Sex: Female

DRUGS (3)
  1. MIRTAZAPINE [Suspect]
     Active Substance: MIRTAZAPINE
     Indication: Product used for unknown indication
     Route: 048
     Dates: start: 20241216, end: 20241216
  2. MIRTAZAPINE [Suspect]
     Active Substance: MIRTAZAPINE
     Route: 048
     Dates: start: 20241217
  3. QUETIAPINE [Suspect]
     Active Substance: QUETIAPINE
     Indication: Product used for unknown indication
     Route: 048
     Dates: start: 20241216

REACTIONS (4)
  - Drug use disorder [Unknown]
  - Miosis [Recovered/Resolved]
  - Somnolence [Recovered/Resolved]
  - Aggression [Recovered/Resolved]

NARRATIVE: CASE EVENT DATE: 20210101
